FAERS Safety Report 11995758 (Version 3)
Quarter: 2016Q2

REPORT INFORMATION
  Report Type: Spontaneous
  Country: US (occurrence: US)
  Receive Date: 20160203
  Receipt Date: 20160407
  Transmission Date: 20160815
  Serious: Yes (Other)
  Sender: FDA-Public Use
  Company Number: US-OTSUKA-2016_002171

PATIENT
  Age: 28 Year
  Sex: Female

DRUGS (2)
  1. BENZTROPINE [Concomitant]
     Active Substance: BENZTROPINE
     Indication: PRODUCT USED FOR UNKNOWN INDICATION
     Dosage: UNK
     Route: 065
  2. ABILIFY MAINTENA [Suspect]
     Active Substance: ARIPIPRAZOLE
     Indication: PRODUCT USED FOR UNKNOWN INDICATION
     Dosage: 400 MG, UNK
     Route: 030

REACTIONS (8)
  - Back pain [Not Recovered/Not Resolved]
  - Urine output increased [Not Recovered/Not Resolved]
  - Muscle spasms [Not Recovered/Not Resolved]
  - Respiratory tract infection [Unknown]
  - Amnesia [Not Recovered/Not Resolved]
  - Chest pain [Not Recovered/Not Resolved]
  - Thirst [Not Recovered/Not Resolved]
  - Inappropriate schedule of drug administration [Unknown]
